FAERS Safety Report 11855206 (Version 1)
Quarter: 2015Q4

REPORT INFORMATION
  Report Type: Spontaneous
  Country: SA (occurrence: SA)
  Receive Date: 20151221
  Receipt Date: 20151221
  Transmission Date: 20160305
  Serious: Yes (Hospitalization, Other)
  Sender: FDA-Public Use
  Company Number: SA-ACTAVIS-2015-15871

PATIENT
  Age: 74 Year
  Sex: Female

DRUGS (5)
  1. METHYLPREDISOLONE [Concomitant]
     Active Substance: METHYLPREDNISOLONE
     Indication: SCIATICA
     Dosage: 80 MG, TOTAL
     Route: 008
  2. OMNIPAQUE [Concomitant]
     Active Substance: IOHEXOL
     Indication: EPIDUROSCOPY
     Dosage: UNK
     Route: 065
  3. METHYLPREDISOLONE [Concomitant]
     Active Substance: METHYLPREDNISOLONE
     Indication: SCIATICA
  4. DULOXETINE (UNKNOWN) [Suspect]
     Active Substance: DULOXETINE
     Indication: SCIATICA
     Dosage: 60 MG, DAILY
     Route: 065
  5. NORMAL SALINE [Concomitant]
     Active Substance: SODIUM CHLORIDE
     Indication: SCIATICA
     Dosage: 10 ML, TOTAL, 0.9%
     Route: 008

REACTIONS (1)
  - Inappropriate antidiuretic hormone secretion [Recovered/Resolved]
